FAERS Safety Report 6288358-2 (Version None)
Quarter: 2009Q3

REPORT INFORMATION
  Report Type: 
  Country: None (occurrence: None)
  Receive Date: 20090729
  Receipt Date: 20090720
  Transmission Date: 20100115
  Serious: Yes (Other)
  Sender: FDA-Public Use
  Company Number: GB-CELGENEUS-167-20484-09071632

PATIENT
  Age: 21 Year
  Sex: Female

DRUGS (10)
  1. INNOHEP [Suspect]
     Route: 058
     Dates: start: 20070920, end: 20071002
  2. INNOHEP [Suspect]
     Route: 058
     Dates: start: 20071003, end: 20080312
  3. INNOHEP [Suspect]
     Route: 058
     Dates: start: 20080314, end: 20080315
  4. INNOHEP [Suspect]
     Route: 058
     Dates: start: 20090316, end: 20090316
  5. INNOHEP [Suspect]
     Route: 058
     Dates: start: 20090317
  6. FOLIC ACID [Concomitant]
     Indication: SPINA BIFIDA
     Route: 065
  7. PHENERGAN [Concomitant]
     Route: 065
     Dates: start: 20080314, end: 20080314
  8. BENZATHINE PENICILLIN G [Concomitant]
     Indication: ANTIBIOTIC THERAPY
     Route: 065
     Dates: start: 20080314, end: 20080314
  9. ACETAMINOPHEN [Concomitant]
     Indication: ANALGESIA
     Route: 065
     Dates: start: 20080228
  10. CODEINE SUL TAB [Concomitant]
     Indication: ANALGESIA
     Route: 065
     Dates: start: 20080228

REACTIONS (3)
  - ANAEMIA FOLATE DEFICIENCY [None]
  - DRUG EXPOSURE DURING PREGNANCY [None]
  - POSTPARTUM HAEMORRHAGE [None]
